FAERS Safety Report 9266217 (Version 6)
Quarter: 2013Q4

REPORT INFORMATION
  Report Type: Spontaneous
  Country: US (occurrence: US)
  Receive Date: 20130502
  Receipt Date: 20131025
  Transmission Date: 20140711
  Serious: Yes (Hospitalization, Other)
  Sender: FDA-Public Use
  Company Number: US-009507513-1304USA017324

PATIENT
  Age: 52 Year
  Sex: Female

DRUGS (3)
  1. PEG-INTRON [Suspect]
     Indication: HEPATITIS C
     Dosage: UNK
     Dates: start: 20130426
  2. REBETOL [Suspect]
     Indication: HEPATITIS C
     Dosage: UNK
     Route: 048
     Dates: start: 20130427
  3. PLAVIX [Concomitant]
     Dosage: UNK
     Dates: start: 2013

REACTIONS (65)
  - Abdominal pain [Unknown]
  - Abdominal distension [Unknown]
  - Deafness [Unknown]
  - Hypoacusis [Unknown]
  - Abdominal pain [Unknown]
  - Nausea [Unknown]
  - Pyrexia [Unknown]
  - Fatigue [Unknown]
  - Myalgia [Unknown]
  - Memory impairment [Unknown]
  - Headache [Unknown]
  - Chills [Unknown]
  - Pyrexia [Unknown]
  - Eye pain [Unknown]
  - Chest pain [Unknown]
  - Dizziness [Unknown]
  - Decreased appetite [Unknown]
  - Pollakiuria [Unknown]
  - Fatigue [Unknown]
  - Injection site reaction [Unknown]
  - Depression [Unknown]
  - Anger [Unknown]
  - Mental status changes [Unknown]
  - Disturbance in attention [Unknown]
  - Affect lability [Unknown]
  - Insomnia [Unknown]
  - Headache [Unknown]
  - Migraine [Unknown]
  - Visual impairment [Unknown]
  - Chest pain [Unknown]
  - Cough [Unknown]
  - Hypertension [Unknown]
  - Fatigue [Unknown]
  - Speech disorder [Unknown]
  - Injection site reaction [Unknown]
  - Skin disorder [Unknown]
  - Injection site reaction [Unknown]
  - Headache [Unknown]
  - Stomatitis [Unknown]
  - Skin lesion [Unknown]
  - Oral herpes [Unknown]
  - Burning sensation [Unknown]
  - Dysphagia [Unknown]
  - Dry eye [Unknown]
  - Ear discomfort [Unknown]
  - Inner ear disorder [Unknown]
  - Fatigue [Unknown]
  - Headache [Unknown]
  - Dizziness [Unknown]
  - Heart rate increased [Unknown]
  - Nausea [Unknown]
  - Depression [Unknown]
  - Confusional state [Unknown]
  - Tachyphrenia [Unknown]
  - Influenza like illness [Unknown]
  - Oral pain [Unknown]
  - Dry mouth [Unknown]
  - Mouth ulceration [Unknown]
  - Diarrhoea [Unknown]
  - Arthritis [Unknown]
  - Neck pain [Unknown]
  - Pain [Unknown]
  - Depression [Unknown]
  - Nausea [Unknown]
  - Pain in extremity [Unknown]
